FAERS Safety Report 11052264 (Version 2)
Quarter: 2015Q2

REPORT INFORMATION
  Report Type: Spontaneous
  Country: US (occurrence: US)
  Receive Date: 20150421
  Receipt Date: 20150427
  Transmission Date: 20150821
  Serious: No
  Sender: FDA-Public Use
  Company Number: US-ASTRAZENECA-2015SE36683

PATIENT
  Sex: Male

DRUGS (1)
  1. PULMICORT FLEXHALER [Suspect]
     Active Substance: BUDESONIDE
     Dosage: 180 MCG 1 PUFF TWICE A DAY
     Route: 055
     Dates: start: 20150413

REACTIONS (2)
  - Circumstance or information capable of leading to medication error [Unknown]
  - Adverse event [Unknown]
